FAERS Safety Report 26082921 (Version 1)
Quarter: 2025Q4

REPORT INFORMATION
  Report Type: Spontaneous
  Country: EU (occurrence: EU)
  Receive Date: 20251124
  Receipt Date: 20251124
  Transmission Date: 20260119
  Serious: Yes (Hospitalization, Other)
  Sender: CHEPLAPHARM
  Company Number: None

PATIENT
  Age: 68 Year
  Sex: Male
  Weight: 63 kg

DRUGS (7)
  1. CAPECITABINE [Suspect]
     Active Substance: CAPECITABINE
     Indication: Adenocarcinoma gastric
     Dosage: 2000 MG MORNING AND EVENING, 2 WEEKS OUT OF 3, CYCLE 1?DAILY DOSE: 4000 MILLIGRAM
     Route: 048
     Dates: start: 20250717
  2. CAPECITABINE [Suspect]
     Active Substance: CAPECITABINE
     Indication: Adenocarcinoma gastric
     Dosage: OCTOBER 17, RESUMPTION OF CAPECITABINE WITH A DOSE REDUCTION TO 1300 MG MORNING AND EVENING FOR T...
     Route: 048
     Dates: start: 20251017
  3. CAPECITABINE [Suspect]
     Active Substance: CAPECITABINE
     Indication: Adenocarcinoma gastric
     Dosage: 1500 MG MORNING AND EVENING DOSE REDUCTION?DAILY DOSE: 3000 MILLIGRAM
     Route: 048
     Dates: end: 20251013
  4. AMLODIPINE [Concomitant]
     Active Substance: AMLODIPINE BESYLATE
     Dosage: DAILY DOSE: 5 MILLIGRAM
  5. MELATONIN [Concomitant]
     Active Substance: MELATONIN
     Dosage: DAILY DOSE: 2 MILLIGRAM
  6. LANSOPRAZOLE [Concomitant]
     Active Substance: LANSOPRAZOLE
     Dosage: TWICE DAILY?DAILY DOSE: 60 MILLIGRAM
  7. ACETAMINOPHEN [Concomitant]
     Active Substance: ACETAMINOPHEN
     Dosage: AS NEEDED

REACTIONS (5)
  - Palmar-plantar erythrodysaesthesia syndrome [Recovering/Resolving]
  - Intervertebral discitis [Unknown]
  - Palmar-plantar erythrodysaesthesia syndrome [Unknown]
  - Spinal cord abscess [Unknown]
  - Therapy cessation [Unknown]

NARRATIVE: CASE EVENT DATE: 20250101
